FAERS Safety Report 6650428-4 (Version None)
Quarter: 2010Q1

REPORT INFORMATION
  Report Type: 
  Country: None (occurrence: None)
  Receive Date: 20100322
  Receipt Date: 20100305
  Transmission Date: 20100710
  Serious: Yes (Hospitalization)
  Sender: FDA-Public Use
  Company Number: 8037716

PATIENT
  Sex: Female
  Weight: 51.6 kg

DRUGS (4)
  1. CERTOLIZUMAB PEGOL (CERTOLIZUMAB PEGOL) [Suspect]
     Indication: RHEUMATOID ARTHRITIS
     Dosage: (200 MG 1X/2 WEEKS SUBCUTANEOUS), (400 MG 1X/2 WEEKS, - NR OF DOSES :38 SUBCUTANEOUS)
     Route: 058
     Dates: start: 20051229, end: 20060614
  2. CERTOLIZUMAB PEGOL (CERTOLIZUMAB PEGOL) [Suspect]
     Indication: RHEUMATOID ARTHRITIS
     Dosage: (200 MG 1X/2 WEEKS SUBCUTANEOUS), (400 MG 1X/2 WEEKS, - NR OF DOSES :38 SUBCUTANEOUS)
     Route: 058
     Dates: start: 20060614, end: 20071101
  3. CERTOLIZUMAB PEGOL (CERTOLIZUMAB PEGOL) [Suspect]
     Indication: RHEUMATOID ARTHRITIS
     Dosage: (200 MG 1X/2 WEEKS SUBCUTANEOUS), (400 MG 1X/2 WEEKS, - NR OF DOSES :38 SUBCUTANEOUS)
     Route: 058
     Dates: start: 20071115, end: 20080904
  4. METHOTREXATE [Concomitant]

REACTIONS (6)
  - BRONCHIAL DISORDER [None]
  - HEADACHE [None]
  - INFLAMMATION [None]
  - LYMPHADENOPATHY [None]
  - PULMONARY TUBERCULOSIS [None]
  - PYREXIA [None]
